FAERS Safety Report 16729999 (Version 1)
Quarter: 2019Q3

REPORT INFORMATION
  Report Type: Spontaneous
  Country: US (occurrence: US)
  Receive Date: 20190708
  Receipt Date: 20190708
  Transmission Date: 20191005
  Serious: No
  Sender: FDA-Public Use
  Company Number: None

PATIENT
  Age: 63 Year
  Sex: Female

DRUGS (1)
  1. ENOXAPARIN INJ 120MG/0.8ML [Suspect]
     Active Substance: ENOXAPARIN
     Indication: PULMONARY EMBOLISM
     Dates: start: 20190601

REACTIONS (3)
  - Injection site mass [None]
  - Injection site bruising [None]
  - Injection site discolouration [None]

NARRATIVE: CASE EVENT DATE: 20190708
